FAERS Safety Report 9329225 (Version 1)
Quarter: 2013Q2

REPORT INFORMATION
  Report Type: Spontaneous
  Country: SE (occurrence: SE)
  Receive Date: 20130604
  Receipt Date: 20130604
  Transmission Date: 20140414
  Serious: Yes (Life-Threatening)
  Sender: FDA-Public Use
  Company Number: SE-UCBSA-087029

PATIENT
  Age: 83 Year
  Sex: Male

DRUGS (13)
  1. KEPPRA [Suspect]
     Indication: MYOCLONUS
     Dosage: 1.5GM/DAY
     Route: 042
     Dates: start: 20130316, end: 20130321
  2. KEPPRA [Suspect]
     Indication: EPILEPSY
     Dosage: 1.5GM/DAY
     Route: 042
     Dates: start: 20130316, end: 20130321
  3. METFORMIN [Suspect]
     Indication: DIABETES MELLITUS
     Dosage: 850 MG/DAY
     Route: 048
     Dates: end: 20130313
  4. DIGOXIN [Suspect]
     Indication: CARDIAC FIBRILLATION
     Dosage: 0.13MG/DAY
     Route: 048
     Dates: start: 201302, end: 20130313
  5. METOPROLOL [Concomitant]
  6. FELODIPIN [Concomitant]
  7. RAMIPRIL [Concomitant]
  8. SALURES [Concomitant]
  9. WARAN [Concomitant]
     Indication: ATRIAL FIBRILLATION
  10. DIGITALIS [Concomitant]
     Indication: ATRIAL FIBRILLATION
  11. VALPROATE [Concomitant]
     Indication: EPILEPSY
  12. VALPROATE [Concomitant]
     Indication: MYOCLONUS
  13. DIGIFAB [Concomitant]

REACTIONS (2)
  - Loss of consciousness [Not Recovered/Not Resolved]
  - Overdose [Unknown]
